FAERS Safety Report 18851609 (Version 1)
Quarter: 2021Q1

REPORT INFORMATION
  Report Type: Spontaneous
  Country: CN (occurrence: CN)
  Receive Date: 20210205
  Receipt Date: 20210205
  Transmission Date: 20210420
  Serious: Yes (Other)
  Sender: FDA-Public Use
  Company Number: CN-BAXTER-2021BAX002364

PATIENT
  Age: 34 Year
  Sex: Female
  Weight: 49 kg

DRUGS (4)
  1. 0.9% SODIUM CHLORIDE INJECTION [Suspect]
     Active Substance: SODIUM CHLORIDE
     Indication: MEDICATION DILUTION
     Dosage: 0.9% SODIUM CHLORIDE 100 ML + CYCLOPHOSPHAMIDE 800 MG
     Route: 041
     Dates: start: 20210114, end: 20210114
  2. FA MA XIN [EPIRUBICIN HYDROCHLORIDE] [Suspect]
     Active Substance: EPIRUBICIN HYDROCHLORIDE
     Indication: BREAST CANCER
     Dosage: EPIRUBICIN HYDROCHLORIDE 130 MG + 0.9% SODIUM CHLORIDE 500 ML
     Route: 041
     Dates: start: 20210114, end: 20210114
  3. ENDOXAN [Suspect]
     Active Substance: CYCLOPHOSPHAMIDE
     Indication: BREAST CANCER
     Dosage: CYCLOPHOSPHAMIDE 800 MG + 0.9% SODIUM CHLORIDE 100 ML
     Route: 041
     Dates: start: 20210114, end: 20210114
  4. 0.9% SODIUM CHLORIDE INJECTION [Suspect]
     Active Substance: SODIUM CHLORIDE
     Dosage: 0.9% SODIUM CHLORIDE 500 ML + EPIRUBICIN HYDROCHLORIDE 130 MG
     Route: 041
     Dates: start: 20210114, end: 20210114

REACTIONS (1)
  - Myelosuppression [Recovering/Resolving]

NARRATIVE: CASE EVENT DATE: 20210122
